FAERS Safety Report 11647407 (Version 1)
Quarter: 2015Q4

REPORT INFORMATION
  Report Type: Spontaneous
  Country: US (occurrence: None)
  Receive Date: 20151019
  Receipt Date: 20151019
  Transmission Date: 20160304
  Serious: No
  Sender: FDA-Public Use
  Company Number: None

PATIENT
  Age: 61 Year
  Sex: Female

DRUGS (1)
  1. HUMIRA [Suspect]
     Active Substance: ADALIMUMAB
     Indication: RHEUMATOID ARTHRITIS
     Route: 058

REACTIONS (5)
  - Thyroid neoplasm [None]
  - Pulmonary mass [None]
  - Adrenal disorder [None]
  - Abdominal pain [None]
  - Nodule [None]

NARRATIVE: CASE EVENT DATE: 20151001
